FAERS Safety Report 6203374-4 (Version None)
Quarter: 2009Q2

REPORT INFORMATION
  Report Type: 
  Country: None (occurrence: None)
  Receive Date: 20090521
  Receipt Date: 20090506
  Transmission Date: 20091009
  Serious: Yes (Death, Hospitalization)
  Sender: FDA-Public Use
  Company Number: 2009001400

PATIENT
  Age: 77 Year
  Sex: Male

DRUGS (6)
  1. ERLOTINIB / PLACEBO(ERLOTINIB HCL) (TABLET) (ERLOTINIB HCL) [Suspect]
     Indication: NON-SMALL CELL LUNG CANCER
     Dosage: (150 MG,QD),ORAL
     Route: 048
     Dates: start: 20081226, end: 20090420
  2. AMOXICILLIN [Concomitant]
  3. FUROSEMIDE [Concomitant]
  4. ZOPICLONE (ZOPICLONE) [Concomitant]
  5. OMEPRAZOLE [Concomitant]
  6. ACETAMINOPHEN W/ CODEINE [Concomitant]

REACTIONS (2)
  - FATIGUE [None]
  - HYDROPNEUMOTHORAX [None]
